FAERS Safety Report 4401506-1 (Version None)
Quarter: 2004Q3

REPORT INFORMATION
  Report Type: 
  Country: None (occurrence: None)
  Receive Date: 20040719
  Receipt Date: 20040705
  Transmission Date: 20050211
  Serious: Yes (Life-Threatening, Hospitalization)
  Sender: FDA-Public Use
  Company Number: 200412102EU

PATIENT
  Age: 63 Year
  Sex: Male
  Weight: 47 kg

DRUGS (10)
  1. STUDY DRUG NOT GIVEN [Suspect]
  2. ASPIRIN [Suspect]
     Indication: MYOCARDIAL INFARCTION
     Route: 048
     Dates: start: 20040209, end: 20040213
  3. ANTITHROMBOTIC AGENTS [Suspect]
     Indication: MYOCARDIAL INFARCTION
     Route: 042
     Dates: start: 20040209, end: 20040209
  4. ENOXAPARIN SODIUM [Suspect]
     Indication: ACUTE MYOCARDIAL INFARCTION
     Route: 058
     Dates: start: 20040210, end: 20040213
  5. CAPTOPRIL [Concomitant]
     Indication: ACUTE MYOCARDIAL INFARCTION
  6. PRAVASTATIN [Concomitant]
     Indication: ACUTE MYOCARDIAL INFARCTION
     Route: 048
     Dates: start: 20040210, end: 20040213
  7. FUROSEMIDE [Concomitant]
     Indication: CARDIAC FAILURE
     Route: 042
     Dates: start: 20040209, end: 20040213
  8. CARVEDILOL [Concomitant]
     Indication: ACUTE MYOCARDIAL INFARCTION
     Route: 048
     Dates: start: 20040211, end: 20040213
  9. PANTOPRAZOL [Concomitant]
     Route: 048
     Dates: start: 20040210, end: 20040213
  10. DOBUTAMINE [Concomitant]
     Indication: HYPOTENSION
     Route: 042
     Dates: start: 20040209, end: 20040210

REACTIONS (1)
  - MYOCARDIAL RUPTURE [None]
